FAERS Safety Report 20511074 (Version 1)
Quarter: 2022Q1

REPORT INFORMATION
  Report Type: Spontaneous
  Country: US (occurrence: US)
  Receive Date: 20220224
  Receipt Date: 20220224
  Transmission Date: 20220423
  Serious: Yes (Death, Hospitalization, Other)
  Sender: FDA-Public Use
  Company Number: US-AMGEN-USASP2022029055

PATIENT

DRUGS (3)
  1. PANITUMUMAB [Suspect]
     Active Substance: PANITUMUMAB
     Indication: Gastrointestinal carcinoma
     Dosage: UNK
     Route: 065
  2. TRASTUZUMAB [Suspect]
     Active Substance: TRASTUZUMAB
     Indication: Breast cancer
     Dosage: UNK
     Route: 065
  3. BEVACIZUMAB [Suspect]
     Active Substance: BEVACIZUMAB
     Indication: Gastrointestinal cancer metastatic
     Dosage: UNK
     Route: 065

REACTIONS (10)
  - Pancreatitis [Unknown]
  - Hepatotoxicity [Unknown]
  - Gastrointestinal carcinoma [Fatal]
  - Neoplasm malignant [Fatal]
  - Breast cancer [Fatal]
  - Haematological malignancy [Fatal]
  - Fungaemia [Fatal]
  - Multiple organ dysfunction syndrome [Fatal]
  - Coeliac disease [Unknown]
  - Malnutrition [Unknown]
